FAERS Safety Report 7440784-1 (Version None)
Quarter: 2011Q2

REPORT INFORMATION
  Report Type: 
  Country: None (occurrence: None)
  Receive Date: 20110427
  Receipt Date: 20110328
  Transmission Date: 20111010
  Serious: No
  Sender: FDA-Public Use
  Company Number: US-BAYER-2011-028463

PATIENT
  Sex: Male
  Weight: 73 kg

DRUGS (14)
  1. FISH OIL [Concomitant]
  2. GLUCOSAMINE W/CHONDROITIN SULFATE [Concomitant]
  3. AMLODIPINE BESYLATE [Concomitant]
  4. CALCIUM [CALCIUM CARBONATE] [Concomitant]
  5. MULTI-VITAMINS [Concomitant]
  6. ALEVE (CAPLET) [Suspect]
     Indication: ARTHRITIS
     Dosage: 2 DF, QD
     Route: 048
  7. VITAMIN B6 [Concomitant]
  8. GINKGO BILOBA [Concomitant]
  9. SAW PALMETTO [Concomitant]
  10. OMEPRAZOLE [Concomitant]
  11. SIMVASTATIN [Concomitant]
  12. CO Q-10 [Concomitant]
  13. VITAMIN C [ASCORBIC ACID,SODIUM ASCORBATE] [Concomitant]
  14. MAGNESIUM [MAGNESIUM] [Concomitant]

REACTIONS (1)
  - NO ADVERSE EVENT [None]
